FAERS Safety Report 26010502 (Version 1)
Quarter: 2025Q4

REPORT INFORMATION
  Report Type: Spontaneous
  Country: CN (occurrence: CN)
  Receive Date: 20251107
  Receipt Date: 20251107
  Transmission Date: 20260117
  Serious: Yes (Other)
  Sender: PHARMOBEDIENT CONSULTING, LLC
  Company Number: CN-Pharmobedient-000432

PATIENT
  Age: 72 Year
  Sex: Male

DRUGS (3)
  1. OXALIPLATIN [Suspect]
     Active Substance: OXALIPLATIN
     Indication: Bladder adenocarcinoma stage unspecified
     Dosage: 3 CYCLES
     Dates: start: 202502, end: 2025
  2. FLUOROURACIL [Suspect]
     Active Substance: FLUOROURACIL
     Indication: Bladder adenocarcinoma stage unspecified
     Dosage: 3 CYCLES
     Dates: start: 202502, end: 2025
  3. LEUCOVORIN [Suspect]
     Active Substance: LEUCOVORIN\LEUCOVORIN CALCIUM
     Indication: Bladder adenocarcinoma stage unspecified
     Dosage: 3 CYCLES
     Dates: start: 202502, end: 2025

REACTIONS (1)
  - Myelosuppression [Recovered/Resolved]

NARRATIVE: CASE EVENT DATE: 20250101
